FAERS Safety Report 4596385-6 (Version None)
Quarter: 2005Q1

REPORT INFORMATION
  Report Type: 
  Country: None (occurrence: None)
  Receive Date: 20050228
  Receipt Date: 20050214
  Transmission Date: 20050727
  Serious: Yes (Hospitalization, Other)
  Sender: FDA-Public Use
  Company Number: 2005031748

PATIENT
  Age: 66 Year
  Sex: Female

DRUGS (3)
  1. CELEBREX [Suspect]
     Indication: ILL-DEFINED DISORDER
     Dosage: ORAL
     Route: 048
     Dates: start: 20041205, end: 20041209
  2. URIDINE TRIPHOSPHATE SODIUM (URIDINE TRIPHOSPHATE SODIUM) [Concomitant]
  3. HOMEOPATIC PREPARATION (HOMEOPATIC PREPARATION) [Concomitant]

REACTIONS (8)
  - APHTHOUS STOMATITIS [None]
  - DIARRHOEA [None]
  - HYPERSENSITIVITY [None]
  - INFLAMMATION [None]
  - LYMPHOPENIA [None]
  - PYREXIA [None]
  - RASH [None]
  - RASH PRURITIC [None]
